FAERS Safety Report 11152222 (Version 1)
Quarter: 2015Q2

REPORT INFORMATION
  Report Type: Spontaneous
  Country: CN (occurrence: CN)
  Receive Date: 20150601
  Receipt Date: 20150601
  Transmission Date: 20150821
  Serious: Yes (Other)
  Sender: FDA-Public Use
  Company Number: CN-BAXTER-2015BAX027862

PATIENT
  Age: 3 Year
  Sex: Female
  Weight: 15 kg

DRUGS (5)
  1. CEFTEZOLE SODIUM FOR INJECTION [Suspect]
     Active Substance: CEFTEZOLE SODIUM
     Indication: PNEUMONIA BACTERIAL
     Route: 041
     Dates: start: 20141019, end: 20141022
  2. 5% GLUCOSE  INJECTION [Suspect]
     Active Substance: DEXTROSE
     Indication: OFF LABEL USE
     Route: 041
     Dates: start: 20141022, end: 20141022
  3. XI YANPING INJECTION [Suspect]
     Active Substance: HERBALS
     Indication: PNEUMONIA BACTERIAL
     Route: 041
     Dates: start: 20141019, end: 20141021
  4. 5% GLUCOSE  INJECTION [Suspect]
     Active Substance: DEXTROSE
     Indication: PNEUMONIA BACTERIAL
     Route: 041
     Dates: start: 20141019, end: 20141022
  5. 0.9% SODIUM CHLORIDE INJECTION [Suspect]
     Active Substance: SODIUM CHLORIDE
     Indication: PNEUMONIA BACTERIAL
     Route: 041
     Dates: start: 20141019, end: 20141021

REACTIONS (2)
  - Off label use [None]
  - Eyelid rash [Recovered/Resolved]

NARRATIVE: CASE EVENT DATE: 20141022
